FAERS Safety Report 7820497-4 (Version None)
Quarter: 2011Q4

REPORT INFORMATION
  Report Type: 
  Country: None (occurrence: None)
  Receive Date: 20111018
  Receipt Date: 20111013
  Transmission Date: 20120403
  Serious: Yes (Life-Threatening, Hospitalization, Other)
  Sender: FDA-Public Use
  Company Number: US-AMGEN-USASP2011044802

PATIENT
  Age: 62 Year
  Sex: Female

DRUGS (1)
  1. ENBREL [Suspect]
     Indication: RHEUMATOID ARTHRITIS
     Dosage: 50 MG, 2 TIMES/WK
     Dates: start: 20090302

REACTIONS (13)
  - ROAD TRAFFIC ACCIDENT [None]
  - FACE INJURY [None]
  - SCIATIC NERVE INJURY [None]
  - RHEUMATOID ARTHRITIS [None]
  - PAIN IN EXTREMITY [None]
  - HEAD INJURY [None]
  - INJECTION SITE PAIN [None]
  - SOMNOLENCE [None]
  - HAEMATOMA INFECTION [None]
  - SKIN INJURY [None]
  - OPEN WOUND [None]
  - GAIT DISTURBANCE [None]
  - FALL [None]
